FAERS Safety Report 14117543 (Version 1)
Quarter: 2017Q4

REPORT INFORMATION
  Report Type: Spontaneous
  Country: ES (occurrence: ES)
  Receive Date: 20171023
  Receipt Date: 20171023
  Transmission Date: 20180321
  Serious: Yes (Hospitalization, Other)
  Sender: FDA-Public Use
  Company Number: ES-ALLERGAN-1757921US

PATIENT
  Age: 54 Year
  Sex: Male

DRUGS (2)
  1. ASENAPINE MALEATE - BP [Suspect]
     Active Substance: ASENAPINE MALEATE
     Dosage: 5 MG, PRN
     Route: 060
     Dates: start: 20171002, end: 20171005
  2. ASENAPINE MALEATE - BP [Suspect]
     Active Substance: ASENAPINE MALEATE
     Indication: BEHAVIOURAL THERAPY
     Dosage: 5 MG, QD
     Route: 060
     Dates: start: 20171002, end: 20171005

REACTIONS (2)
  - Off label use [Unknown]
  - Generalised tonic-clonic seizure [Recovering/Resolving]

NARRATIVE: CASE EVENT DATE: 20171002
